FAERS Safety Report 18734548 (Version 3)
Quarter: 2021Q1

REPORT INFORMATION
  Report Type: Report from Study
  Country: DE (occurrence: DE)
  Receive Date: 20210113
  Receipt Date: 20210119
  Transmission Date: 20210419
  Serious: Yes (Death, Hospitalization, Other)
  Sender: FDA-Public Use
  Company Number: DE-BRISTOL-MYERS SQUIBB COMPANY-BMS-2020-100332

PATIENT
  Age: 64 Year
  Sex: Female

DRUGS (19)
  1. MOVICOL [Concomitant]
     Active Substance: POLYETHYLENE GLYCOL 3350\POTASSIUM CHLORIDE\SODIUM BICARBONATE\SODIUM CHLORIDE
     Indication: PROPHYLAXIS
     Dosage: UNK, BEUTEL (SACHET)
     Route: 065
     Dates: start: 20191210
  2. DIMETHICONE. [Concomitant]
     Active Substance: DIMETHICONE
     Indication: PROPHYLAXIS
     Dosage: 4 MILLIGRAM, 1?0?0
     Route: 065
     Dates: start: 20191104, end: 20191104
  3. IBUPROFEN. [Concomitant]
     Active Substance: IBUPROFEN
     Indication: NEOPLASM
     Dosage: 600 MILLIGRAM, 1?1?1?1
     Route: 065
     Dates: start: 20191103
  4. NOVALGIN (METAMIZOLE SODIUM) [Concomitant]
     Active Substance: METAMIZOLE SODIUM
     Indication: NEOPLASM
     Dosage: UNK, 30 1?1?1?1
     Route: 065
     Dates: start: 20191103
  5. QUETIAPIN [Concomitant]
     Active Substance: QUETIAPINE
     Indication: NEOPLASM
     Dosage: 50 MILLIGRAM, 0?0?0?1
     Route: 065
     Dates: start: 20191103
  6. MIRTAZAPIN [Concomitant]
     Active Substance: MIRTAZAPINE
     Indication: NEOPLASM
     Dosage: 15 MILLIGRAM, 0?0?0?1
     Route: 065
     Dates: start: 20191103
  7. QUETIAPIN [Concomitant]
     Active Substance: QUETIAPINE
     Indication: PROPHYLAXIS
     Dosage: 12.5 MILLIGRAM, 0?0?1
     Route: 065
     Dates: start: 20200430
  8. CLINDAMYCIN. [Concomitant]
     Active Substance: CLINDAMYCIN
     Indication: PROPHYLAXIS
     Dosage: UNK, 300,0 1?1?1?1
     Route: 065
     Dates: start: 20191103
  9. MCP [Concomitant]
     Active Substance: METOCLOPRAMIDE HYDROCHLORIDE
     Indication: PROPHYLAXIS
     Dosage: 10 MILLIGRAM
     Route: 065
     Dates: start: 20191209
  10. CLEXANE [Concomitant]
     Active Substance: ENOXAPARIN SODIUM
     Indication: PROPHYLAXIS
     Dosage: 40 MILLIGRAM, 0?0?1
     Route: 065
     Dates: start: 20191223
  11. PARACETAMOL [Concomitant]
     Active Substance: ACETAMINOPHEN
     Indication: PROPHYLAXIS
     Dosage: 1000 MILLIGRAM, 1?0?0
     Route: 048
     Dates: start: 20191104, end: 20191104
  12. NIVOLUMAB [Suspect]
     Active Substance: NIVOLUMAB
     Indication: SQUAMOUS CELL CARCINOMA OF HEAD AND NECK
     Dosage: 240 MILLIGRAM, Q2WK
     Route: 042
     Dates: start: 20191104, end: 20201028
  13. GRANISETRON [Concomitant]
     Active Substance: GRANISETRON
     Indication: PROPHYLAXIS
     Dosage: UNK, 2 MG BB (AS NEEDED)
     Route: 065
     Dates: start: 20200129
  14. MIRTAZAPIN [Concomitant]
     Active Substance: MIRTAZAPINE
     Indication: PROPHYLAXIS
     Dosage: UNK, 2 X 15MG 0?1
     Route: 065
     Dates: start: 20200430
  15. MST [MORPHINE SULFATE] [Concomitant]
     Active Substance: MORPHINE SULFATE
     Indication: NEOPLASM
     Dosage: UNK, TROPFEN BB (4 DROPS AS NEEDED)
     Route: 065
     Dates: start: 20200119
  16. TIANEURAX [Concomitant]
     Active Substance: TIANEPTINE SODIUM
     Indication: PROPHYLAXIS
     Dosage: 12.5 MILLIGRAM, 1?0?0
     Route: 065
     Dates: start: 20200430
  17. FENTANYL. [Concomitant]
     Active Substance: FENTANYL
     Indication: NEOPLASM
     Dosage: 2.89 MILLIGRAM PLUS 5.7, 8 MG 1?1?1?1
     Route: 065
     Dates: start: 20191111
  18. MORPHIN [MORPHINE HYDROCHLORIDE] [Concomitant]
     Active Substance: MORPHINE HYDROCHLORIDE
     Indication: NEOPLASM
     Dosage: UNK, 5R 2%
     Route: 042
     Dates: start: 20191210
  19. OMEP [OMEPRAZOLE] [Concomitant]
     Indication: PROPHYLAXIS
     Dosage: 40 MILLIGRAM, 1?0?0
     Route: 065
     Dates: start: 20191104

REACTIONS (2)
  - Death [Fatal]
  - General physical health deterioration [Unknown]

NARRATIVE: CASE EVENT DATE: 20201112
